FAERS Safety Report 16927259 (Version 1)
Quarter: 2019Q4

REPORT INFORMATION
  Report Type: Spontaneous
  Country: US (occurrence: US)
  Receive Date: 20191016
  Receipt Date: 20191016
  Transmission Date: 20200122
  Serious: No
  Sender: FDA-Public Use
  Company Number: US-OPTINOSE US, INC-2019OPT000781

PATIENT
  Age: 70 Year
  Sex: Male
  Weight: 90.8 kg

DRUGS (2)
  1. XHANCE [Suspect]
     Active Substance: FLUTICASONE PROPIONATE
     Indication: NASAL CONGESTION
     Route: 045
     Dates: start: 201907
  2. LISINOPRIL. [Concomitant]
     Active Substance: LISINOPRIL
     Dosage: PATIENT THINKS IT IS 10
     Route: 065

REACTIONS (2)
  - Faeces hard [Not Recovered/Not Resolved]
  - Product use in unapproved indication [Unknown]

NARRATIVE: CASE EVENT DATE: 201907
